FAERS Safety Report 4865377-1 (Version None)
Quarter: 2005Q4

REPORT INFORMATION
  Report Type: 
  Country: None (occurrence: None)
  Receive Date: 20051220
  Receipt Date: 20051220
  Transmission Date: 20060501
  Serious: Yes (Hospitalization, Disabling, Other)
  Sender: FDA-Public Use
  Company Number: None

PATIENT
  Age: 62 Year
  Sex: Male

DRUGS (9)
  1. CHLOR-TRIMETON [Suspect]
     Indication: HYPERSENSITIVITY
     Dosage: 2 TABS ORAL
     Route: 048
     Dates: start: 19940605, end: 19940605
  2. CHLOR-TRIMETON [Suspect]
     Indication: NASOPHARYNGITIS
     Dosage: 2 TABS ORAL
     Route: 048
     Dates: start: 19940605, end: 19940605
  3. TRIAMINIC SRT [Suspect]
     Indication: NASOPHARYNGITIS
     Dosage: 2 TABS
     Dates: start: 19940605, end: 19940605
  4. ALKA SELTZER PLUS COLD + FLU (APAP/CHLORPHENIRAMINE/ORAL SOLUTION) [Suspect]
     Indication: HYPERSENSITIVITY
     Dosage: 2 TABS
     Dates: start: 19940605, end: 19940605
  5. ALKA SELTZER PLUS COLD + FLU (APAP/CHLORPHENIRAMINE/ORAL SOLUTION) [Suspect]
     Indication: NASOPHARYNGITIS
     Dosage: 2 TABS
     Dates: start: 19940605, end: 19940605
  6. DILANTIN [Concomitant]
  7. NICODERM [Concomitant]
  8. TRANXENE [Concomitant]
  9. PHENOBARBITAL [Concomitant]

REACTIONS (13)
  - BEDRIDDEN [None]
  - CEREBRAL INFARCTION [None]
  - COGNITIVE DISORDER [None]
  - DYSSTASIA [None]
  - FEAR [None]
  - INJURY [None]
  - ISCHAEMIC STROKE [None]
  - MIGRAINE [None]
  - NERVOUS SYSTEM DISORDER [None]
  - PAIN [None]
  - PARALYSIS [None]
  - PNEUMONIA ASPIRATION [None]
  - TREMOR [None]
